FAERS Safety Report 18921241 (Version 9)
Quarter: 2021Q3

REPORT INFORMATION
  Report Type: Report from Study
  Country: US (occurrence: US)
  Receive Date: 20210222
  Receipt Date: 20210727
  Transmission Date: 20211014
  Serious: Yes (Death, Life-Threatening, Hospitalization)
  Sender: FDA-Public Use
  Company Number: US-CELGENEUS-USA-20210204648

PATIENT
  Age: 68 Year
  Sex: Female
  Weight: 46 kg

DRUGS (71)
  1. AZACITIDINE. [Suspect]
     Active Substance: AZACITIDINE
     Dosage: 115 MG X 1 X 1 DAYS
     Route: 042
     Dates: start: 20210211, end: 20210211
  2. INSULIN LISPRO [Concomitant]
     Active Substance: INSULIN LISPRO
     Indication: TYPE 2 DIABETES MELLITUS
     Dosage: SLIDING SCALE U X 1 X 1 DAYS
     Route: 058
     Dates: end: 20210214
  3. CALCITRIOL. [Concomitant]
     Active Substance: CALCITRIOL
     Indication: SUPPLEMENTATION THERAPY
     Dosage: 0.25 UG X 1 X 1 DAYS
     Route: 048
     Dates: start: 20210205
  4. CYANOCOBALAMIN. [Concomitant]
     Active Substance: CYANOCOBALAMIN
     Dosage: 100 UG X 1 X 1 DAYS
     Route: 050
     Dates: start: 20210217
  5. LORAZEPAM. [Concomitant]
     Active Substance: LORAZEPAM
     Indication: BIOPSY BONE MARROW
     Dosage: 0.5 MG X ONCE
     Route: 042
     Dates: start: 20210129, end: 20210129
  6. ONDANSETRON [Concomitant]
     Active Substance: ONDANSETRON
     Dosage: 16 MG X ONCE
     Route: 048
     Dates: start: 20210208, end: 20210208
  7. ONDANSETRON [Concomitant]
     Active Substance: ONDANSETRON
     Dosage: 16 MG X ONCE
     Route: 048
     Dates: start: 20210211, end: 20210211
  8. PANTOPRAZOLE [Concomitant]
     Active Substance: PANTOPRAZOLE
     Indication: GASTROOESOPHAGEAL REFLUX DISEASE
     Dosage: 40 MG X 2 X 1 DAYS
     Route: 048
     Dates: start: 20200821
  9. POLYETHYLENE GLYCOL [Concomitant]
     Active Substance: POLYETHYLENE GLYCOLS
     Indication: CONSTIPATION
     Dosage: 17 G X PRN
     Route: 048
     Dates: start: 20200827
  10. PRAVASTATIN. [Concomitant]
     Active Substance: PRAVASTATIN
     Indication: HYPERLIPIDAEMIA
     Dosage: 40 MG X 1 X 1 DAYS
     Route: 048
     Dates: start: 20201215
  11. SENNA?DOCUSATE [Concomitant]
     Active Substance: DOCUSATE SODIUM\SENNOSIDES
     Indication: CONSTIPATION
     Dosage: 2 TABLET X 2 X 1 DAYS
     Route: 048
     Dates: start: 20200927
  12. CALCIUM CITRATE [Concomitant]
     Active Substance: CALCIUM CITRATE
     Indication: SUPPLEMENTATION THERAPY
     Dosage: 500 MG X 3 X 1 DAYS
     Route: 048
     Dates: start: 20210205
  13. CHLORHEXIDINE SOLUTION [Concomitant]
     Active Substance: CHLORHEXIDINE
     Indication: PROPHYLAXIS
     Dosage: 15 ML X 2 X 1 DAYS
     Route: 048
     Dates: start: 20210217
  14. CYANOCOBALAMIN. [Concomitant]
     Active Substance: CYANOCOBALAMIN
     Indication: PROPHYLAXIS
     Dosage: 100 UG X 1 X 1 DAYS
     Route: 048
     Dates: start: 20201214, end: 20210215
  15. GABAPENTIN. [Concomitant]
     Active Substance: GABAPENTIN
     Indication: NEUROPATHY PERIPHERAL
     Dosage: 200 MG X 3 X 1 DAYS
     Route: 048
     Dates: start: 20210115
  16. LIDOCAINE. [Concomitant]
     Active Substance: LIDOCAINE
     Indication: OSTEOARTHRITIS
  17. LINEZOLID. [Concomitant]
     Active Substance: LINEZOLID
     Indication: ADVERSE EVENT
     Dosage: 600 MG X 2 X 1 DAYS
     Route: 042
     Dates: start: 20210212, end: 20210215
  18. LORAZEPAM. [Concomitant]
     Active Substance: LORAZEPAM
     Dosage: 0.5 MG X ONCE
     Route: 042
     Dates: start: 20210212, end: 20210212
  19. MORPHINE [Concomitant]
     Active Substance: MORPHINE
     Indication: BACK PAIN
     Dosage: 7.5 MG
     Route: 048
     Dates: start: 20210130, end: 20210130
  20. PREDNISONE. [Concomitant]
     Active Substance: PREDNISONE
     Indication: PRODUCT USED FOR UNKNOWN INDICATION
     Dosage: 20 MG X 1 X 1 DAYS
     Route: 048
     Dates: start: 20210203
  21. SODIUM PHOSPHATE?POTASSIUM PHOSPHATE [Concomitant]
     Indication: PROPHYLAXIS
     Dosage: 500 MG X PRN
     Route: 048
     Dates: start: 20210206
  22. AMLODIPINE [Concomitant]
     Active Substance: AMLODIPINE BESYLATE
     Indication: HYPERTENSION
     Dosage: 5 MG X 1 X 1 DAYS
     Route: 048
     Dates: start: 20210125
  23. FUROSEMIDE. [Concomitant]
     Active Substance: FUROSEMIDE
     Indication: PROPHYLAXIS
     Dosage: 20 MG X PRN
     Route: 042
     Dates: start: 20210206
  24. ONDANSETRON [Concomitant]
     Active Substance: ONDANSETRON
     Dosage: 16 MG X ONCE
     Route: 048
     Dates: start: 20210206, end: 20210206
  25. ONDANSETRON [Concomitant]
     Active Substance: ONDANSETRON
     Dosage: 16 MG X ONCE
     Route: 048
     Dates: start: 20210209, end: 20210209
  26. VANCOMYCIN [Concomitant]
     Active Substance: VANCOMYCIN
     Indication: PROPHYLAXIS
     Dosage: 125 MG X 1 X 6 HOURS
     Route: 048
     Dates: start: 20210212, end: 20210213
  27. AZACITIDINE. [Suspect]
     Active Substance: AZACITIDINE
     Indication: ACUTE MYELOID LEUKAEMIA
     Dosage: 115 MG X 1 X 1 DAYS
     Route: 042
     Dates: start: 20210205, end: 20210205
  28. INSULIN LISPRO [Concomitant]
     Active Substance: INSULIN LISPRO
     Dosage: SLIDING SCALE U X 3 X 1 DAYS
     Route: 058
     Dates: end: 20210215
  29. FOLIC ACID. [Concomitant]
     Active Substance: FOLIC ACID
     Dosage: 1 MG X 1 X 1 DAYS
     Route: 050
     Dates: start: 20210217
  30. HYDROXYUREA. [Concomitant]
     Active Substance: HYDROXYUREA
     Indication: WHITE BLOOD CELL COUNT INCREASED
     Dosage: 1000 MG X 2 X 1 DAYS
     Route: 048
     Dates: start: 20210202, end: 20210203
  31. INSULIN REGULAR [Concomitant]
     Active Substance: INSULIN NOS
     Indication: TYPE 2 DIABETES MELLITUS
     Dosage: SLIDING SCALE U X PRN
     Route: 058
     Dates: start: 20210206, end: 20210206
  32. LIDOCAINE. [Concomitant]
     Active Substance: LIDOCAINE
     Indication: BACK PAIN
     Dosage: 1 PATCH X 1 X 1 DAYS
     Route: 062
     Dates: start: 20201203
  33. MICAFUNGIN. [Concomitant]
     Active Substance: MICAFUNGIN SODIUM
     Indication: PROPHYLAXIS
     Dosage: 50 MG X 1 X 1 DAYS
     Route: 042
     Dates: start: 20210122
  34. ONDANSETRON [Concomitant]
     Active Substance: ONDANSETRON
     Indication: PROPHYLAXIS
     Dosage: 16 MG X ONCE
     Route: 048
     Dates: start: 20210205, end: 20210205
  35. ONDANSETRON [Concomitant]
     Active Substance: ONDANSETRON
     Dosage: 16 MG X ONCE
     Route: 048
     Dates: start: 20210210, end: 20210210
  36. RAMELTEON [Concomitant]
     Active Substance: RAMELTEON
     Indication: INSOMNIA
     Dosage: 8 MG X 1 X 1 DAYS
     Route: 048
     Dates: start: 20200928
  37. CC?90009 [Suspect]
     Active Substance: INVESTIGATIONAL PRODUCT
     Indication: ACUTE MYELOID LEUKAEMIA
     Dosage: 3 MG X 1 X 1 DAYS
     Route: 042
     Dates: start: 20210208, end: 20210208
  38. ALLOPURINOL. [Concomitant]
     Active Substance: ALLOPURINOL
     Dosage: 200 MG X 1 X 1 DAYS
     Route: 050
     Dates: start: 20210217
  39. FOLIC ACID. [Concomitant]
     Active Substance: FOLIC ACID
     Indication: NUTRITIONAL SUPPLEMENTATION
     Dosage: 1 MG X 1 X 1 DAYS
     Route: 048
     Dates: start: 20201215
  40. INSULIN GLARGINE [Concomitant]
     Active Substance: INSULIN GLARGINE
     Indication: TYPE 2 DIABETES MELLITUS
     Dosage: SLIDING SCALE U X 1 X 1 DAYS
     Route: 058
     Dates: start: 20200927, end: 20210215
  41. ONDANSETRON [Concomitant]
     Active Substance: ONDANSETRON
     Dosage: 16 MG X ONCE
     Route: 048
     Dates: start: 20210212, end: 20210212
  42. POLYVINYL ALCOHOL?POVIDONE [Concomitant]
     Active Substance: POLYVINYL ALCOHOL\POVIDONE
     Indication: PROPHYLAXIS
     Dosage: 1 GTT X 1 X 2 HOURS
     Route: 061
     Dates: start: 20210218
  43. PREDNISONE. [Concomitant]
     Active Substance: PREDNISONE
     Indication: PROPHYLAXIS
     Dosage: 40 MG X 1 X 1 DAYS
     Route: 048
     Dates: start: 20210130, end: 20210202
  44. CHOLECALCIFEROL [Concomitant]
     Active Substance: CHOLECALCIFEROL
     Indication: SUPPLEMENTATION THERAPY
     Dosage: 1000 U X 1 X 1 DAYS
     Route: 048
     Dates: start: 20210205
  45. HYDROMORPHONE [Concomitant]
     Active Substance: HYDROMORPHONE
     Indication: BIOPSY BONE MARROW
     Dosage: 0.5 MG X ONCE
     Route: 042
     Dates: start: 20210129, end: 20210129
  46. HYDROMORPHONE [Concomitant]
     Active Substance: HYDROMORPHONE
     Dosage: 0.5 MG X ONCE
     Route: 042
     Dates: start: 20210212, end: 20210212
  47. LIDOCAINE. [Concomitant]
     Active Substance: LIDOCAINE
     Indication: PRODUCT USED FOR UNKNOWN INDICATION
     Dosage: 20 MG X ONCE
     Route: 058
     Dates: start: 20210212, end: 20210212
  48. LINEZOLID. [Concomitant]
     Active Substance: LINEZOLID
     Indication: PROPHYLAXIS
     Dosage: 600 MG X 1 X 12 HOURS
     Route: 042
     Dates: start: 20210118, end: 20210202
  49. LISINOPRIL. [Concomitant]
     Active Substance: LISINOPRIL
     Indication: HYPERTENSION
     Dosage: 20 MG X 1 X 1 DAYS
     Route: 048
     Dates: start: 20210125, end: 20210131
  50. MAGNESIUM SULFATE. [Concomitant]
     Active Substance: MAGNESIUM SULFATE
     Dosage: 2 G X ONCE
     Route: 042
     Dates: start: 20210216, end: 20210216
  51. MEROPENEM. [Concomitant]
     Active Substance: MEROPENEM
     Indication: ADVERSE EVENT
     Dosage: 1000 MG X 1 X 12 HOURS
     Route: 042
     Dates: start: 20210214, end: 20210215
  52. MORPHINE [Concomitant]
     Active Substance: MORPHINE
     Indication: OSTEOARTHRITIS
     Dosage: 7.5 MG X PRN
     Route: 048
     Dates: start: 20210131
  53. VENETOCLAX. [Suspect]
     Active Substance: VENETOCLAX
     Dosage: 400 MG X 1 X 1 DAYS
     Route: 048
     Dates: start: 20210207, end: 20210215
  54. ACETAMINOPHEN. [Concomitant]
     Active Substance: ACETAMINOPHEN
     Indication: ADVERSE EVENT
     Dosage: 650 MG X ONCE
     Route: 054
     Dates: start: 20210216, end: 20210216
  55. BISACODYL EC [Concomitant]
     Active Substance: BISACODYL
     Indication: CONSTIPATION
     Dosage: 5 MG X PRN
     Route: 048
     Dates: start: 20201202
  56. CALCITRIOL. [Concomitant]
     Active Substance: CALCITRIOL
     Indication: ADVERSE EVENT
     Dosage: 0.5 UG X 2 X 1 DAYS
     Route: 048
     Dates: start: 20210211
  57. POLYMYXIN B?TRIMETHOPRIM [Concomitant]
     Active Substance: POLYMYXIN B SULFATE\TRIMETHOPRIM
     Indication: PROPHYLAXIS
     Dosage: 1 GTT X 2 X 1 DAYS
     Route: 061
     Dates: start: 20210218
  58. POLYVINYL ALCOHOL POVIDONE [Concomitant]
     Indication: AUTOIMMUNE UVEITIS
     Dosage: 1.4?0.6 % X PRN
     Route: 061
     Dates: start: 20201214
  59. PRAVASTATIN. [Concomitant]
     Active Substance: PRAVASTATIN
     Dosage: 40 MG X PRN
     Route: 050
     Dates: start: 20210217
  60. VALACYCLOVIR [Concomitant]
     Active Substance: VALACYCLOVIR HYDROCHLORIDE
     Indication: PROPHYLAXIS
     Dosage: 500 MG X 1 X 1 DAYS
     Route: 048
     Dates: start: 20201215
  61. CC?90009 [Suspect]
     Active Substance: INVESTIGATIONAL PRODUCT
     Dosage: 3 MG X 1 X 1 DAYS
     Route: 042
     Dates: start: 20210212, end: 20210212
  62. VENETOCLAX. [Suspect]
     Active Substance: VENETOCLAX
     Indication: ACUTE MYELOID LEUKAEMIA
     Dosage: 100 MG X 1 X 1 DAYS
     Route: 048
     Dates: start: 20210205, end: 20210205
  63. ACETAMINOPHEN. [Concomitant]
     Active Substance: ACETAMINOPHEN
     Indication: PROPHYLAXIS
     Dosage: 650 MG X PRN
     Route: 048
     Dates: start: 20201214
  64. ALLOPURINOL. [Concomitant]
     Active Substance: ALLOPURINOL
     Indication: PROPHYLAXIS
     Dosage: 300 MG X 1 X 1 DAYS
     Route: 048
     Dates: start: 20210202, end: 20210215
  65. GUAIFINISEN [Concomitant]
     Indication: PROPHYLAXIS
     Dosage: 200 MG X PRN
     Route: 048
     Dates: start: 20210118
  66. INSULIN REGULAR [Concomitant]
     Active Substance: INSULIN NOS
     Dosage: SLIDING SCALE U
     Route: 042
     Dates: start: 20210207, end: 20210207
  67. MAGNESIUM OXIDE. [Concomitant]
     Active Substance: MAGNESIUM OXIDE
     Indication: PROPHYLAXIS
     Dosage: 400 MG X PRN
     Route: 048
     Dates: start: 20210205
  68. MAGNESIUM SULFATE. [Concomitant]
     Active Substance: MAGNESIUM SULFATE
     Indication: PROPHYLAXIS
     Dosage: 2 G X PRN
     Route: 042
     Dates: start: 20210205
  69. MEROPENEM. [Concomitant]
     Active Substance: MEROPENEM
     Indication: PROPHYLAXIS
     Dosage: 1000 MG X 3 X 1 DAYS
     Route: 042
     Dates: start: 20210106
  70. MICAFUNGIN. [Concomitant]
     Active Substance: MICAFUNGIN SODIUM
     Indication: ADVERSE EVENT
     Dosage: 150 MG X 1 X 1 DAYS
     Route: 042
     Dates: start: 20210217
  71. ONDANSETRON [Concomitant]
     Active Substance: ONDANSETRON
     Dosage: 16 MG X ONCE
     Route: 048
     Dates: start: 20210207, end: 20210207

REACTIONS (1)
  - Fungal sepsis [Fatal]

NARRATIVE: CASE EVENT DATE: 20210216
